FAERS Safety Report 13916645 (Version 2)
Quarter: 2017Q4

REPORT INFORMATION
  Report Type: Report from Study
  Country: DE (occurrence: DE)
  Receive Date: 20170829
  Receipt Date: 20171103
  Transmission Date: 20180320
  Serious: Yes (Death)
  Sender: FDA-Public Use
  Company Number: DE-CELGENEUS-DEU-20170807915

PATIENT
  Age: 62 Year
  Sex: Female
  Weight: 42 kg

DRUGS (27)
  1. PANTOPRAZOL [Concomitant]
     Active Substance: PANTOPRAZOLE SODIUM
     Indication: GASTROOESOPHAGEAL REFLUX DISEASE
     Dosage: 40 MILLIGRAM
     Route: 048
     Dates: start: 2016
  2. MIRTAZAPIN [Concomitant]
     Active Substance: MIRTAZAPINE
     Indication: DEPRESSION
     Dosage: 30 MILLIGRAM
     Route: 048
     Dates: start: 2014
  3. MOVICOL [Concomitant]
     Active Substance: POLYETHYLENE GLYCOL 3350\POTASSIUM CHLORIDE\SODIUM BICARBONATE\SODIUM CHLORIDE
     Indication: CONSTIPATION
     Route: 048
     Dates: start: 201704
  4. NOVAMINSULFON [Concomitant]
     Active Substance: METAMIZOLE
     Indication: TUMOUR PAIN
     Dosage: 2000 MILLIGRAM
     Route: 048
     Dates: start: 20170526
  5. KABIVEN [Concomitant]
     Active Substance: AMINO ACIDS\ANHYDROUS DEXTROSE\CALCIUM CHLORIDE\MAGNESIUM SULFATE HEPTAHYDRATE\POTASSIUM CHLORIDE\SODIUM ACETATE\SODIUM GLYCEROPHOSPHATE ANHYDROUS\SOYBEAN OIL
     Indication: PROPHYLAXIS
  6. ABSTRAL [Concomitant]
     Active Substance: FENTANYL CITRATE
     Indication: DYSPNOEA
     Dosage: 100 MICROGRAM
     Route: 048
     Dates: start: 20170526, end: 20170720
  7. BEROTEC [Concomitant]
     Active Substance: FENOTEROL HYDROBROMIDE
     Indication: CHRONIC OBSTRUCTIVE PULMONARY DISEASE
     Route: 055
  8. ATROVENT [Concomitant]
     Active Substance: IPRATROPIUM BROMIDE
     Indication: CHRONIC OBSTRUCTIVE PULMONARY DISEASE
     Route: 055
     Dates: start: 20170602
  9. TILIDIN [Concomitant]
     Active Substance: NALOXONE HYDROCHLORIDE\TILIDINE HYDROCHLORIDE
     Indication: TUMOUR PAIN
     Dosage: 50/4 MG
     Route: 048
     Dates: start: 20170508, end: 20170620
  10. KABIVEN [Concomitant]
     Active Substance: AMINO ACIDS\ANHYDROUS DEXTROSE\CALCIUM CHLORIDE\MAGNESIUM SULFATE HEPTAHYDRATE\POTASSIUM CHLORIDE\SODIUM ACETATE\SODIUM GLYCEROPHOSPHATE ANHYDROUS\SOYBEAN OIL
     Indication: CACHEXIA
     Dosage: 900 KCAL
     Route: 051
     Dates: start: 20170620
  11. CERNEVIT [Concomitant]
     Active Substance: VITAMINS
     Indication: PROPHYLAXIS
  12. RAMIPRIL. [Concomitant]
     Active Substance: RAMIPRIL
     Indication: HYPERTENSION
     Dosage: 5 MILLIGRAM
     Route: 048
     Dates: start: 2016
  13. VENLAFAXIN [Concomitant]
     Active Substance: VENLAFAXINE HYDROCHLORIDE
     Indication: DEPRESSION
     Dosage: 150 MILLIGRAM
     Route: 048
     Dates: start: 2014
  14. ADDEL [Concomitant]
     Indication: PROPHYLAXIS
  15. UREA CREME [Concomitant]
     Indication: PALMAR-PLANTAR ERYTHRODYSAESTHESIA SYNDROME
     Route: 062
     Dates: start: 20170609
  16. OXYGEN. [Concomitant]
     Active Substance: OXYGEN
     Indication: CHRONIC OBSTRUCTIVE PULMONARY DISEASE
     Dosage: 2 LITERS
     Route: 045
     Dates: start: 20170504
  17. SPIRIVA [Concomitant]
     Active Substance: TIOTROPIUM BROMIDE MONOHYDRATE
     Indication: CHRONIC OBSTRUCTIVE PULMONARY DISEASE
     Route: 055
     Dates: start: 20170621
  18. FORADIL [Concomitant]
     Active Substance: FORMOTEROL FUMARATE
     Indication: CHRONIC OBSTRUCTIVE PULMONARY DISEASE
     Route: 055
  19. CLEXANE [Concomitant]
     Active Substance: ENOXAPARIN SODIUM
     Indication: THROMBOSIS PROPHYLAXIS
     Dosage: .4 MILLILITER
     Route: 058
     Dates: start: 20170621
  20. DEKRISTOL [Concomitant]
     Active Substance: CHOLECALCIFEROL
     Indication: OSTEOPOROSIS
     Dosage: 2857.1429 IU (INTERNATIONAL UNIT)
     Route: 048
     Dates: start: 2016
  21. PREDNISON [Concomitant]
     Active Substance: PREDNISONE
     Indication: DYSPNOEA
     Dosage: 30 MILLIGRAM
     Route: 048
     Dates: start: 20170612, end: 20170615
  22. ABRAXANE [Suspect]
     Active Substance: PACLITAXEL
     Indication: NON-SMALL CELL LUNG CANCER
     Route: 041
  23. ADDEL [Concomitant]
     Indication: CACHEXIA
     Dosage: 10 KCAL
     Route: 051
     Dates: start: 20170620
  24. CERNEVIT [Concomitant]
     Active Substance: VITAMINS
     Indication: CACHEXIA
     Dosage: 750 KCAL
     Route: 051
     Dates: start: 20170620
  25. UNACID [Concomitant]
     Active Substance: AMPICILLIN SODIUM\SULBACTAM SODIUM
     Indication: INFECTION
     Route: 065
     Dates: start: 20170703
  26. RULID [Concomitant]
     Active Substance: ROXITHROMYCIN
     Indication: INFECTION
     Route: 065
     Dates: start: 20170703
  27. MCP [Concomitant]
     Active Substance: METOCLOPRAMIDE HYDROCHLORIDE
     Indication: NAUSEA
     Route: 048
     Dates: start: 20170507, end: 20170609

REACTIONS (1)
  - Death [Fatal]

NARRATIVE: CASE EVENT DATE: 20170720
